FAERS Safety Report 15801481 (Version 1)
Quarter: 2019Q1

REPORT INFORMATION
  Report Type: Spontaneous
  Country: US (occurrence: US)
  Receive Date: 20190109
  Receipt Date: 20190109
  Transmission Date: 20190417
  Serious: Yes (Other)
  Sender: FDA-Public Use
  Company Number: PHEH2019US001176

PATIENT
  Sex: Female

DRUGS (2)
  1. IBRANCE [Suspect]
     Active Substance: PALBOCICLIB
     Indication: BREAST CANCER
     Dosage: 125 MG, DAILY FOR 21 DAYS ON AND 7 DAYS OFF
     Route: 048
     Dates: start: 20180902, end: 20181218
  2. FEMARA [Suspect]
     Active Substance: LETROZOLE
     Indication: BREAST CANCER
     Dosage: UNK UNK, QD
     Route: 048
     Dates: end: 20181218

REACTIONS (1)
  - Metastases to liver [Unknown]
